FAERS Safety Report 8029220-4 (Version None)
Quarter: 2012Q1

REPORT INFORMATION
  Report Type: 
  Country: None (occurrence: None)
  Receive Date: 20120106
  Receipt Date: 20120102
  Transmission Date: 20120608
  Serious: Yes (Other)
  Sender: FDA-Public Use
  Company Number: US-US-EMD SERONO, INC.-232932J10USA

PATIENT
  Sex: Female
  Weight: 75 kg

DRUGS (2)
  1. REBIF [Suspect]
     Indication: RELAPSING-REMITTING MULTIPLE SCLEROSIS
     Route: 058
     Dates: start: 20071024, end: 20091101
  2. FLU VACCINE [Suspect]
     Indication: ANTIVIRAL PROPHYLAXIS
     Route: 065
     Dates: start: 20090910, end: 20090910

REACTIONS (1)
  - SARCOIDOSIS [None]
